FAERS Safety Report 7465409-0 (Version None)
Quarter: 2011Q2

REPORT INFORMATION
  Report Type: 
  Country: None (occurrence: None)
  Receive Date: 20110509
  Receipt Date: 20100910
  Transmission Date: 20111010
  Serious: No
  Sender: FDA-Public Use
  Company Number: US-BAUSCH-2010BL005199

PATIENT
  Age: 60 Year
  Sex: Female

DRUGS (3)
  1. LOTEMAX [Suspect]
     Indication: OFF LABEL USE
     Route: 047
     Dates: start: 20100818, end: 20100830
  2. LOTEMAX [Suspect]
     Indication: DRY EYE
     Route: 047
     Dates: start: 20100818, end: 20100830
  3. RENU MULTIPLUS REWETTING DROPS [Suspect]
     Indication: DRY EYE
     Route: 047
     Dates: start: 20100801, end: 20100801

REACTIONS (6)
  - HERPES ZOSTER [None]
  - DRUG INEFFECTIVE FOR UNAPPROVED INDICATION [None]
  - EYE PAIN [None]
  - IMMUNOSUPPRESSION [None]
  - DRUG INTERACTION [None]
  - SINUSITIS [None]
